FAERS Safety Report 20611769 (Version 5)
Quarter: 2024Q3

REPORT INFORMATION
  Report Type: Report from Study
  Country: DE (occurrence: DE)
  Receive Date: 20220318
  Receipt Date: 20240702
  Transmission Date: 20241017
  Serious: Yes (Hospitalization, Other)
  Sender: PFIZER
  Company Number: DE-002147023-NVSC2022DE025945

PATIENT
  Sex: Female

DRUGS (3)
  1. METHOTREXATE SODIUM [Suspect]
     Active Substance: METHOTREXATE SODIUM
     Dosage: 15 MG, WEEKLY
  2. METHOTREXATE SODIUM [Suspect]
     Active Substance: METHOTREXATE SODIUM
     Dosage: 7.5 MG, WEEKLY
  3. ERELZI [Suspect]
     Active Substance: ETANERCEPT-SZZS
     Dosage: 50 MG, QW (EVERY SEVEN DAYS)
     Dates: start: 202105

REACTIONS (8)
  - Weight decreased [Unknown]
  - Gastritis [Unknown]
  - Faecaloma [Recovered/Resolved]
  - Subileus [Recovered/Resolved]
  - Bradycardia [Unknown]
  - Heart rate abnormal [Not Recovered/Not Resolved]
  - Injection site reaction [Recovered/Resolved]
  - Dizziness [Not Recovered/Not Resolved]

NARRATIVE: CASE EVENT DATE: 20210605
